FAERS Safety Report 4422709-6 (Version None)
Quarter: 2004Q3

REPORT INFORMATION
  Report Type: 
  Country: None (occurrence: None)
  Receive Date: 20040713
  Receipt Date: 20030825
  Transmission Date: 20050211
  Serious: No
  Sender: FDA-Public Use
  Company Number: PHEH2003US06613

PATIENT
  Age: 49 Year
  Sex: Female
  Weight: 54.4 kg

DRUGS (2)
  1. ELIDEL [Suspect]
     Indication: DRY SKIN
     Dosage: TOPICAL
     Route: 061
     Dates: start: 20030714, end: 20030808
  2. PAXIL [Concomitant]

REACTIONS (4)
  - APPLICATION SITE PIGMENTATION CHANGES [None]
  - CONJUNCTIVITIS [None]
  - FUNGAL INFECTION [None]
  - VAGINAL SWELLING [None]
